FAERS Safety Report 25243470 (Version 1)
Quarter: 2025Q2

REPORT INFORMATION
  Report Type: Spontaneous
  Country: US (occurrence: US)
  Receive Date: 20250428
  Receipt Date: 20250428
  Transmission Date: 20250716
  Serious: No
  Sender: ROCHE
  Company Number: US-ROCHE-10000266800

PATIENT
  Sex: Male
  Weight: 86.18 kg

DRUGS (6)
  1. OCREVUS [Suspect]
     Active Substance: OCRELIZUMAB
     Indication: Relapsing-remitting multiple sclerosis
     Route: 042
  2. MORPHINE [Concomitant]
     Active Substance: MORPHINE
     Indication: Pain
  3. OXCARBAZEPINE [Concomitant]
     Active Substance: OXCARBAZEPINE
     Indication: Pain
  4. VALIUM [Concomitant]
     Active Substance: DIAZEPAM
     Indication: Muscle spasms
  5. TIZANIDINE [Concomitant]
     Active Substance: TIZANIDINE
     Indication: Muscle spasms
  6. MODAFINIL [Concomitant]
     Active Substance: MODAFINIL
     Indication: Fatigue

REACTIONS (2)
  - Fatigue [Unknown]
  - Muscle spasms [Unknown]
